FAERS Safety Report 9754015 (Version 1)
Quarter: 2013Q4

REPORT INFORMATION
  Report Type: Spontaneous
  Country: US (occurrence: US)
  Receive Date: 20131213
  Receipt Date: 20131213
  Transmission Date: 20140711
  Serious: No
  Sender: FDA-Public Use
  Company Number: US-GLAXOSMITHKLINE-A1007824A

PATIENT
  Sex: Female

DRUGS (2)
  1. NICORETTE [Suspect]
     Indication: EX-TOBACCO USER
     Dates: start: 200501
  2. PRIVATE LABEL LOZENGE 2MG (UNKNOWN BRAND) [Suspect]
     Indication: EX-TOBACCO USER

REACTIONS (1)
  - Intentional drug misuse [Not Recovered/Not Resolved]
